FAERS Safety Report 7967698-2 (Version None)
Quarter: 2011Q4

REPORT INFORMATION
  Report Type: 
  Country: None (occurrence: None)
  Receive Date: 20111209
  Receipt Date: 20111206
  Transmission Date: 20120403
  Serious: Yes (Other)
  Sender: FDA-Public Use
  Company Number: US-PFIZER INC-2011243438

PATIENT
  Age: 51 Year
  Sex: Male

DRUGS (2)
  1. IBUPROFEN (ADVIL) [Suspect]
     Indication: MYALGIA
     Dosage: 2 DF, UNK
     Route: 065
     Dates: start: 20111018
  2. DOXYCYCLINE [Suspect]
     Dosage: UNK

REACTIONS (6)
  - JARISCH-HERXHEIMER REACTION [None]
  - BLOOD COUNT ABNORMAL [None]
  - WEIGHT DECREASED [None]
  - LIVER FUNCTION TEST ABNORMAL [None]
  - TINNITUS [None]
  - LYME DISEASE [None]
